FAERS Safety Report 10029929 (Version 2)
Quarter: 2014Q2

REPORT INFORMATION
  Report Type: Spontaneous
  Country: US (occurrence: US)
  Receive Date: 20140323
  Receipt Date: 20140610
  Transmission Date: 20141212
  Serious: No
  Sender: FDA-Public Use
  Company Number: US-009507513-1403USA007814

PATIENT
  Age: 55 Year
  Sex: Female
  Weight: 101.59 kg

DRUGS (4)
  1. CLARITIN REDITABS [Suspect]
     Indication: HYPERSENSITIVITY
     Dosage: 10 MG, Q12H
     Route: 048
     Dates: start: 20140301, end: 20140303
  2. CLARITIN REDITABS [Suspect]
     Indication: RHINORRHOEA
  3. CLARITIN REDITABS [Suspect]
     Indication: EYE PRURITUS
  4. VITAMIN D (UNSPECIFIED) [Concomitant]
     Indication: PRODUCT USED FOR UNKNOWN INDICATION
     Dosage: UNK, UNKNOWN

REACTIONS (2)
  - Overdose [Unknown]
  - Drug ineffective [Unknown]
